FAERS Safety Report 24941717 (Version 1)
Quarter: 2025Q1

REPORT INFORMATION
  Report Type: Spontaneous
  Country: FR (occurrence: FR)
  Receive Date: 20250207
  Receipt Date: 20250207
  Transmission Date: 20250409
  Serious: Yes (Death, Other)
  Sender: BRISTOL-MYERS SQUIBB COMPANY
  Company Number: None

PATIENT
  Age: 93 Year
  Sex: Male
  Weight: 71 kg

DRUGS (1)
  1. ELIQUIS [Suspect]
     Active Substance: APIXABAN
     Indication: Atrial fibrillation
     Route: 048
     Dates: start: 2022, end: 20250106

REACTIONS (3)
  - Subdural haematoma [Fatal]
  - Brain herniation [Fatal]
  - Product communication issue [Fatal]

NARRATIVE: CASE EVENT DATE: 20241227
